FAERS Safety Report 21323838 (Version 2)
Quarter: 2022Q3

REPORT INFORMATION
  Report Type: Spontaneous
  Country: IT (occurrence: IT)
  Receive Date: 20220912
  Receipt Date: 20220920
  Transmission Date: 20221027
  Serious: Yes (Hospitalization, Other)
  Sender: FDA-Public Use
  Company Number: IT-SUN PHARMACEUTICAL INDUSTRIES LTD-2022R1-354122

PATIENT
  Age: 93 Year
  Sex: Female

DRUGS (12)
  1. AMLODIPINE [Suspect]
     Active Substance: AMLODIPINE BESYLATE
     Indication: Hypertension
     Dosage: 10 MILLIGRAM, QD
     Route: 065
  2. PANTOPRAZOLE [Suspect]
     Active Substance: PANTOPRAZOLE
     Indication: Flatulence
     Dosage: 40 MILLIGRAM, QD
     Route: 065
  3. SIMVASTATIN [Suspect]
     Active Substance: SIMVASTATIN
     Indication: Hypertension
     Dosage: 40 MILLIGRAM, QD
     Route: 065
  4. SIMVASTATIN [Suspect]
     Active Substance: SIMVASTATIN
     Dosage: 20 MILLIGRAM, ALTERNATE DAYS
     Route: 065
  5. SIMVASTATIN [Suspect]
     Active Substance: SIMVASTATIN
     Dosage: 20 MILLIGRAM, 2 DAYS PER WEEK
     Route: 065
  6. ASPIRIN [Suspect]
     Active Substance: ASPIRIN
     Indication: Hypertension
     Dosage: 100 MILLIGRAM, QD
     Route: 065
  7. ASPIRIN [Suspect]
     Active Substance: ASPIRIN
     Dosage: 30 MILLIGRAM, QD
     Route: 065
  8. CLOPIDOGREL [Suspect]
     Active Substance: CLOPIDOGREL BISULFATE
     Indication: Product used for unknown indication
     Dosage: 75 MILLIGRAM, QD
     Route: 065
  9. ISOSORBIDE MONONITRATE [Suspect]
     Active Substance: ISOSORBIDE MONONITRATE
     Indication: Product used for unknown indication
     Dosage: 20 MILLIGRAM, BID
     Route: 065
  10. METOPROLOL [Suspect]
     Active Substance: METOPROLOL
     Indication: Hypertension
     Dosage: 100 MILLIGRAM, QD
     Route: 065
  11. LOSARTAN [Concomitant]
     Active Substance: LOSARTAN
     Indication: Product used for unknown indication
     Dosage: 50 1/2 CP A DAY
     Route: 065
  12. LEVOTHYROXINE [Concomitant]
     Active Substance: LEVOTHYROXINE
     Indication: Product used for unknown indication
     Dosage: 75 1 CP
     Route: 065

REACTIONS (11)
  - Renal failure [Recovering/Resolving]
  - Toxicity to various agents [Unknown]
  - Pulmonary oedema [Recovered/Resolved]
  - Cardiac failure acute [Recovered/Resolved]
  - Condition aggravated [Recovered/Resolved]
  - Mitral valve stenosis [Recovered/Resolved]
  - Pulmonary oedema [Recovered/Resolved]
  - Cardiorenal syndrome [Recovering/Resolving]
  - Sodium retention [Recovered/Resolved]
  - Rash erythematous [Recovered/Resolved]
  - Mitral valve incompetence [Recovered/Resolved]
